FAERS Safety Report 7426441-6 (Version None)
Quarter: 2011Q2

REPORT INFORMATION
  Report Type: 
  Country: None (occurrence: None)
  Receive Date: 20110420
  Receipt Date: 20110316
  Transmission Date: 20111010
  Serious: Yes (Hospitalization)
  Sender: FDA-Public Use
  Company Number: US-BAYER-201041537NA

PATIENT
  Age: 27 Year
  Sex: Female
  Weight: 88.435 kg

DRUGS (3)
  1. YAZ [Suspect]
     Indication: ACNE
  2. YASMIN [Suspect]
     Indication: ACNE
  3. ALLEGRA-D [FEXOFENADINE HYDROCHLORIDE,PSEUDOEPHEDRINE HYDROCHLORIDE] [Concomitant]
     Indication: MULTIPLE ALLERGIES

REACTIONS (2)
  - CHOLECYSTITIS [None]
  - ABDOMINAL PAIN [None]
